FAERS Safety Report 19979888 (Version 3)
Quarter: 2023Q1

REPORT INFORMATION
  Report Type: Spontaneous
  Country: CA (occurrence: CA)
  Receive Date: 20211021
  Receipt Date: 20230322
  Transmission Date: 20230417
  Serious: Yes (Hospitalization, Other)
  Sender: FDA-Public Use
  Company Number: E2B_03041417

PATIENT

DRUGS (11)
  1. FUROSEMIDE [Suspect]
     Active Substance: FUROSEMIDE
     Indication: Ascites
     Dosage: 40 MG, QD (1 EVERY 1 DAYS)
     Route: 065
  2. FUROSEMIDE [Suspect]
     Active Substance: FUROSEMIDE
     Dosage: 20 MG, QD (1 EVERY 1 DAYS)
     Route: 065
  3. FUROSEMIDE [Suspect]
     Active Substance: FUROSEMIDE
     Dosage: 40 UNK
     Route: 065
     Dates: start: 2019, end: 2019
  4. FUROSEMIDE [Suspect]
     Active Substance: FUROSEMIDE
     Dosage: UNK
     Route: 065
  5. SPIRONOLACTONE [Suspect]
     Active Substance: SPIRONOLACTONE
     Indication: Ascites
     Dosage: 50 MILLIGRAM, QD
     Route: 065
     Dates: start: 2019
  6. SPIRONOLACTONE [Suspect]
     Active Substance: SPIRONOLACTONE
     Dosage: UNK
     Route: 065
  7. SANDOSTATIN LAR DEPOT [Suspect]
     Active Substance: OCTREOTIDE ACETATE
     Indication: Neuroendocrine tumour
     Dosage: 30 MG, QMO, (1 EVERY 1 MONTH)
     Route: 030
  8. OCTREOTIDE [Suspect]
     Active Substance: OCTREOTIDE
     Indication: Neuroendocrine tumour
     Dosage: 30 MG, QMO (1 EVERY 1 MONTH)
     Route: 030
  9. OCTREOTIDE [Suspect]
     Active Substance: OCTREOTIDE
     Indication: Hepatocellular carcinoma
     Dosage: 30 MG, Q3WK (1 EVERY 3 WEEKS)
     Route: 030
  10. OCTREOTIDE [Suspect]
     Active Substance: OCTREOTIDE
     Dosage: 30 MG, QMO
     Route: 030
     Dates: start: 20170524
  11. SUNITINIB [Concomitant]
     Active Substance: SUNITINIB
     Indication: Product used for unknown indication
     Dosage: UNK
     Route: 065

REACTIONS (46)
  - Abdominal distension [Unknown]
  - Abdominal pain [Unknown]
  - Amino acid level decreased [Unknown]
  - Blood pressure increased [Unknown]
  - Dyspepsia [Unknown]
  - Fatigue [Unknown]
  - Flatulence [Unknown]
  - Gastrointestinal disorder [Unknown]
  - Chills [Unknown]
  - Heart rate decreased [Unknown]
  - Human epidermal growth factor receptor decreased [Unknown]
  - Intestinal obstruction [Unknown]
  - Muscle spasms [Unknown]
  - Pain [Unknown]
  - Pain in extremity [Unknown]
  - Dizziness postural [Unknown]
  - Weight decreased [Unknown]
  - Varices oesophageal [Unknown]
  - Blood pressure systolic decreased [Unknown]
  - Ascites [Recovering/Resolving]
  - Blood pressure diastolic decreased [Unknown]
  - Fluid retention [Unknown]
  - Dehydration [Unknown]
  - Hypotension [Unknown]
  - Blood creatinine increased [Unknown]
  - Nephrolithiasis [Unknown]
  - Hepatocellular carcinoma [Unknown]
  - Hypophagia [Unknown]
  - Oedema peripheral [Unknown]
  - Pharyngitis [Unknown]
  - Varices oesophageal [Unknown]
  - Scleral discolouration [Unknown]
  - Balance disorder [Unknown]
  - Asthenia [Unknown]
  - Malaise [Unknown]
  - Platelet count decreased [Unknown]
  - Hepatic enzyme increased [Unknown]
  - Abdominal pain upper [Unknown]
  - Dizziness [Unknown]
  - Drug hypersensitivity [Unknown]
  - Influenza [Unknown]
  - Intervertebral disc protrusion [Unknown]
  - Malignant neoplasm progression [Unknown]
  - Neoplasm progression [Unknown]
  - Metastases to liver [Unknown]
  - Inappropriate schedule of product administration [Unknown]

NARRATIVE: CASE EVENT DATE: 20130101
